FAERS Safety Report 16923302 (Version 2)
Quarter: 2019Q4

REPORT INFORMATION
  Report Type: Spontaneous
  Country: US (occurrence: US)
  Receive Date: 20191016
  Receipt Date: 20191023
  Transmission Date: 20200122
  Serious: No
  Sender: FDA-Public Use
  Company Number: NVSC2019US002081

PATIENT
  Age: 62 Year
  Sex: Female

DRUGS (9)
  1. HYDROXYCHLOROQUINE SULFATE. [Suspect]
     Active Substance: HYDROXYCHLOROQUINE SULFATE
     Indication: LICHEN PLANOPILARIS
     Dosage: 200 MG, BID (FOR 6 MONTHS)
     Route: 048
  2. FINASTERIDE. [Suspect]
     Active Substance: FINASTERIDE
     Indication: LICHEN PLANOPILARIS
     Route: 065
  3. TACROLIMUS. [Suspect]
     Active Substance: TACROLIMUS
     Indication: LICHEN PLANOPILARIS
     Dosage: 0.1 %, QD
     Route: 061
  4. USTEKINUMAB [Concomitant]
     Active Substance: USTEKINUMAB
     Indication: PSORIASIS
     Dosage: 90 MG (EVERY 12 WEEKS)
     Route: 058
  5. CLINDAMYCIN. [Suspect]
     Active Substance: CLINDAMYCIN
     Indication: LICHEN PLANOPILARIS
     Dosage: UNK, QD
     Route: 061
  6. MINOXIDIL. [Suspect]
     Active Substance: MINOXIDIL
     Indication: LICHEN PLANOPILARIS
     Route: 065
  7. TRIAMCINOLONE ACETONIDE. [Suspect]
     Active Substance: TRIAMCINOLONE ACETONIDE
     Indication: LICHEN PLANOPILARIS
     Route: 065
  8. MINOCYCLINE HYDROCHLORIDE. [Suspect]
     Active Substance: MINOCYCLINE HYDROCHLORIDE
     Indication: LICHEN PLANOPILARIS
     Dosage: 100 MG, BID (FOR OVER ONE YEAR)
     Route: 048
  9. FLUOCINONIDE. [Suspect]
     Active Substance: FLUOCINONIDE
     Indication: LICHEN PLANOPILARIS
     Dosage: 0.05 %, BID
     Route: 061

REACTIONS (2)
  - Product use in unapproved indication [Unknown]
  - Drug ineffective [Unknown]
